FAERS Safety Report 19569266 (Version 1)
Quarter: 2021Q3

REPORT INFORMATION
  Report Type: Report from Study
  Country: None (occurrence: US)
  Receive Date: 20210714
  Receipt Date: 20210714
  Transmission Date: 20211014
  Serious: Yes (Hospitalization)
  Sender: FDA-Public Use
  Company Number: US-ABBVIE-20K-163-3624577-00

PATIENT
  Age: 44 Year
  Sex: Female
  Weight: 130.3 kg

DRUGS (7)
  1. IMIPRAMINE [Concomitant]
     Active Substance: IMIPRAMINE
     Indication: MENTAL DISORDER
  2. XANAX [Concomitant]
     Active Substance: ALPRAZOLAM
     Indication: MENTAL DISORDER
  3. CRESTOR [Concomitant]
     Active Substance: ROSUVASTATIN CALCIUM
     Indication: PRODUCT USED FOR UNKNOWN INDICATION
  4. HUMIRA [Suspect]
     Active Substance: ADALIMUMAB
     Indication: PSORIASIS
     Dosage: CITRATE FREE
     Route: 058
  5. HUMIRA [Suspect]
     Active Substance: ADALIMUMAB
     Indication: PSORIATIC ARTHROPATHY
  6. PROZAC [Concomitant]
     Active Substance: FLUOXETINE HYDROCHLORIDE
     Indication: MENTAL DISORDER
  7. DEPAKOTE [Concomitant]
     Active Substance: DIVALPROEX SODIUM
     Indication: MENTAL DISORDER

REACTIONS (5)
  - Breast mass [Unknown]
  - Diabetes mellitus [Recovering/Resolving]
  - Bipolar disorder [Recovering/Resolving]
  - Staphylococcal infection [Recovering/Resolving]
  - Abscess [Recovered/Resolved]

NARRATIVE: CASE EVENT DATE: 202007
